FAERS Safety Report 6181968-2 (Version None)
Quarter: 2009Q2

REPORT INFORMATION
  Report Type: 
  Country: None (occurrence: None)
  Receive Date: 20090505
  Receipt Date: 20090423
  Transmission Date: 20091009
  Serious: Yes (Hospitalization)
  Sender: FDA-Public Use
  Company Number: 231161K08USA

PATIENT
  Age: 48 Year
  Sex: Female

DRUGS (3)
  1. REBIF [Suspect]
     Indication: MULTIPLE SCLEROSIS
     Dosage: 44 MCG, 3 IN 1 WEEKS, SUBCUTANEOUS
     Route: 058
     Dates: start: 20050419
  2. ZOMIG [Concomitant]
  3. BISOPROLOL (BISOPROLOL /00802601/) [Concomitant]

REACTIONS (7)
  - CONDITION AGGRAVATED [None]
  - CONVERSION DISORDER [None]
  - CONVULSION [None]
  - DEPRESSION [None]
  - HALLUCINATION [None]
  - HYPERTENSION [None]
  - PSYCHOTIC DISORDER [None]
